FAERS Safety Report 9508221 (Version 2)
Quarter: 2013Q4

REPORT INFORMATION
  Report Type: Spontaneous
  Country: US (occurrence: US)
  Receive Date: 20130909
  Receipt Date: 20131010
  Transmission Date: 20140711
  Serious: No
  Sender: FDA-Public Use
  Company Number: US-PFIZER INC-2013257077

PATIENT
  Age: 68 Year
  Sex: Male
  Weight: 70.3 kg

DRUGS (7)
  1. PRISTIQ [Suspect]
     Indication: DEPRESSION
     Dosage: 50 MG, UNK
     Dates: start: 2008, end: 201308
  2. PRISTIQ [Suspect]
     Dosage: UNK
     Dates: start: 2013
  3. LISINOPRIL W/HYDROCHLOROTHIAZIDE [Concomitant]
     Indication: HYPERTENSION
     Dosage: LISINOPRIL: 10MG / HYDROCHLOROTHIAZIDE: 12.5MG, DAILY
  4. CLOPIDOGREL [Concomitant]
     Indication: THROMBOSIS
     Dosage: 75 MG, DAILY
  5. SIMVASTATIN [Concomitant]
     Dosage: 20 MG, DAILY
  6. DETROL [Concomitant]
     Dosage: 100 MG, UNK
  7. XANAX [Concomitant]
     Indication: DEPRESSION
     Dosage: 0.5 MG, AS NEEDED

REACTIONS (9)
  - Drug withdrawal syndrome [Unknown]
  - Dizziness [Unknown]
  - Chest discomfort [Unknown]
  - Irritability [Unknown]
  - Tachyphrenia [Unknown]
  - Dysstasia [Unknown]
  - Discomfort [Unknown]
  - Feeling abnormal [Unknown]
  - Wrong technique in drug usage process [Unknown]
